FAERS Safety Report 16004725 (Version 1)
Quarter: 2019Q1

REPORT INFORMATION
  Report Type: Spontaneous
  Country: US (occurrence: US)
  Receive Date: 20190226
  Receipt Date: 20190226
  Transmission Date: 20190418
  Serious: Yes (Other)
  Sender: FDA-Public Use
  Company Number: None

PATIENT
  Age: 53 Year
  Sex: Female
  Weight: 67.5 kg

DRUGS (2)
  1. VITAMIN D [Concomitant]
     Active Substance: CHOLECALCIFEROL
  2. DULOXETINE 30 MG CAP AJA [Suspect]
     Active Substance: DULOXETINE
     Indication: FIBROMYALGIA
     Dosage: ?          QUANTITY:30 CAPSULE(S);?
     Route: 048

REACTIONS (7)
  - Temperature regulation disorder [None]
  - Diarrhoea [None]
  - Photopsia [None]
  - Fall [None]
  - Night sweats [None]
  - Irritability [None]
  - Metamorphopsia [None]

NARRATIVE: CASE EVENT DATE: 20190223
